FAERS Safety Report 10461411 (Version 1)
Quarter: 2014Q3

REPORT INFORMATION
  Report Type: Spontaneous
  Country: US (occurrence: None)
  Receive Date: 20140915
  Receipt Date: 20140915
  Transmission Date: 20150326
  Serious: Yes (Hospitalization, Other)
  Sender: FDA-Public Use
  Company Number: 2010S1000403C

PATIENT
  Age: 56 Year
  Sex: Male

DRUGS (3)
  1. DIURETICS [Concomitant]
     Active Substance: UNSPECIFIED INGREDIENT
  2. ACE INHIBITORS [Concomitant]
     Active Substance: UNSPECIFIED INGREDIENT
  3. PHOSPHO-SODA [Suspect]
     Active Substance: SODIUM PHOSPHATE, DIBASIC\SODIUM PHOSPHATE, MONOBASIC
     Indication: COLONOSCOPY
     Dates: start: 200702, end: 200702

REACTIONS (9)
  - Iron deficiency anaemia [None]
  - Anal haemorrhage [None]
  - Blood parathyroid hormone increased [None]
  - Renal atrophy [None]
  - Diverticulum [None]
  - Renal failure chronic [None]
  - Dyspnoea [None]
  - Hypoaesthesia [None]
  - Paraesthesia [None]

NARRATIVE: CASE EVENT DATE: 200110
